FAERS Safety Report 5377735-X (Version None)
Quarter: 2007Q2

REPORT INFORMATION
  Report Type: 
  Country: None (occurrence: None)
  Receive Date: 20070530
  Receipt Date: 20070305
  Transmission Date: 20071010
  Serious: No
  Sender: FDA-Public Use
  Company Number: 2007PV031120

PATIENT
  Age: 67 Year
  Sex: Female

DRUGS (3)
  1. BYETTA [Suspect]
     Indication: DRUG USE FOR UNKNOWN INDICATION
     Dosage: 5 MCG; SC
     Route: 058
  2. ACTOS [Concomitant]
  3. GLYBURIDE [Concomitant]

REACTIONS (2)
  - BLOOD GLUCOSE DECREASED [None]
  - PALPITATIONS [None]
